FAERS Safety Report 22193861 (Version 1)
Quarter: 2023Q2

REPORT INFORMATION
  Report Type: Spontaneous
  Country: RU (occurrence: RU)
  Receive Date: 20230410
  Receipt Date: 20230410
  Transmission Date: 20230722
  Serious: Yes (Hospitalization)
  Sender: FDA-Public Use
  Company Number: RU-ABBVIE-4723473

PATIENT
  Age: 65 Year
  Sex: Female
  Weight: 99 kg

DRUGS (2)
  1. KALETRA [Suspect]
     Active Substance: LOPINAVIR\RITONAVIR
     Indication: COVID-19
     Route: 048
     Dates: start: 20200727, end: 20200728
  2. Infibeta (interferon beta-1b) [Concomitant]
     Indication: COVID-19
     Dosage: 80 MILLIONS OF UNITS (80 MG)
     Route: 058
     Dates: start: 20200727, end: 20200728

REACTIONS (1)
  - Hepatic enzyme increased [Recovered/Resolved]

NARRATIVE: CASE EVENT DATE: 20200727
